FAERS Safety Report 8336820 (Version 2)
Quarter: 2013Q1

REPORT INFORMATION
  Report Type: Spontaneous
  Country: US (occurrence: US)
  Receive Date: 20120113
  Receipt Date: 20130125
  Transmission Date: 20140127
  Serious: Yes (Hospitalization)
  Sender: FDA-Public Use
  Company Number: US-GLAXOSMITHKLINE-A0791885A

PATIENT
  Age: 59 Year
  Sex: Female
  Weight: 142.3 kg

DRUGS (9)
  1. AVANDIA [Suspect]
     Indication: DIABETES MELLITUS
     Route: 048
     Dates: end: 2007
  2. AVANDAMET [Suspect]
     Indication: DIABETES MELLITUS
     Route: 048
  3. METFORMIN [Concomitant]
  4. SYNTHROID [Concomitant]
  5. NORVASC [Concomitant]
  6. ZOCOR [Concomitant]
  7. LOPRESSOR [Concomitant]
  8. HCTZ [Concomitant]
  9. AMARYL [Concomitant]

REACTIONS (4)
  - Aortic valve stenosis [Not Recovered/Not Resolved]
  - Respiratory failure [Unknown]
  - Cardiac failure congestive [Unknown]
  - Traumatic lung injury [Unknown]
